FAERS Safety Report 8618786-9 (Version None)
Quarter: 2012Q3

REPORT INFORMATION
  Report Type: 
  Country: None (occurrence: None)
  Receive Date: 20120824
  Receipt Date: 20120817
  Transmission Date: 20120928
  Serious: Yes (Hospitalization)
  Sender: FDA-Public Use
  Company Number: US-JNJFOC-20120808905

PATIENT
  Sex: Male

DRUGS (1)
  1. NUCYNTA ER [Suspect]
     Indication: PAIN
     Route: 048
     Dates: start: 20111001, end: 20111001

REACTIONS (6)
  - SPEECH DISORDER [None]
  - MEMORY IMPAIRMENT [None]
  - MENTAL IMPAIRMENT [None]
  - FEELING ABNORMAL [None]
  - BODY TEMPERATURE FLUCTUATION [None]
  - DYSARTHRIA [None]
